FAERS Safety Report 7401982-6 (Version None)
Quarter: 2011Q2

REPORT INFORMATION
  Report Type: 
  Country: None (occurrence: None)
  Receive Date: 20110408
  Receipt Date: 20110405
  Transmission Date: 20111010
  Serious: Yes (Hospitalization, Disabling, Other)
  Sender: FDA-Public Use
  Company Number: US-PFIZER INC-2010081097

PATIENT
  Sex: Male

DRUGS (4)
  1. ZYPREXA [Concomitant]
     Indication: BIPOLAR DISORDER
     Dosage: UNK
     Dates: start: 20080101
  2. THORAZINE [Concomitant]
     Indication: DEPRESSION
  3. CHANTIX [Suspect]
     Indication: SMOKING CESSATION THERAPY
     Dosage: 0.5MG/1MG
     Dates: start: 20090101, end: 20090501
  4. THORAZINE [Concomitant]
     Indication: BIPOLAR DISORDER
     Dosage: UNK
     Dates: start: 20080101

REACTIONS (9)
  - AGGRESSION [None]
  - INTENTIONAL OVERDOSE [None]
  - ANXIETY [None]
  - ABNORMAL BEHAVIOUR [None]
  - IMPAIRED DRIVING ABILITY [None]
  - DEPRESSION [None]
  - MENTAL DISORDER [None]
  - SUICIDE ATTEMPT [None]
  - EMOTIONAL DISTRESS [None]
